FAERS Safety Report 6638613-9 (Version None)
Quarter: 2010Q1

REPORT INFORMATION
  Report Type: 
  Country: None (occurrence: None)
  Receive Date: 20100317
  Receipt Date: 20100308
  Transmission Date: 20100710
  Serious: Yes (Death, Hospitalization)
  Sender: FDA-Public Use
  Company Number: US-AMGEN-QUU388785

PATIENT
  Sex: Male
  Weight: 97.2 kg

DRUGS (11)
  1. NPLATE [Suspect]
     Indication: MULTIPLE MYELOMA
     Route: 058
     Dates: start: 20090113, end: 20090929
  2. VELCADE [Concomitant]
  3. ZOLOFT [Concomitant]
  4. NADOLOL [Concomitant]
  5. GLIMEPIRIDE [Concomitant]
  6. AMBIEN [Concomitant]
  7. TYLENOL-500 [Concomitant]
  8. ZOMETA [Concomitant]
     Dates: end: 20091001
  9. NEXIUM [Concomitant]
  10. COMPAZINE [Concomitant]
  11. NEUPOGEN [Concomitant]
     Route: 058
     Dates: start: 20090930, end: 20091001

REACTIONS (9)
  - ACUTE RESPIRATORY DISTRESS SYNDROME [None]
  - ATRIAL FIBRILLATION [None]
  - MALNUTRITION [None]
  - MULTI-ORGAN FAILURE [None]
  - NEUTROPENIC SEPSIS [None]
  - OXYGEN SATURATION DECREASED [None]
  - PNEUMONIA [None]
  - RENAL FAILURE [None]
  - SEPTIC SHOCK [None]
